FAERS Safety Report 17516434 (Version 2)
Quarter: 2021Q4

REPORT INFORMATION
  Report Type: Spontaneous
  Country: US (occurrence: US)
  Receive Date: 20200309
  Receipt Date: 20211228
  Transmission Date: 20220303
  Serious: Yes (Other)
  Sender: FDA-Public Use
  Company Number: US-PFIZER INC-2019280333

PATIENT
  Age: 57 Year
  Sex: Female

DRUGS (1)
  1. SUTENT [Suspect]
     Active Substance: SUNITINIB MALATE
     Indication: Soft tissue sarcoma
     Dosage: 37.5 MG, CYCLIC (1 PO QD 2 WEEKS ON 1 WEEK OFF QTY: 21 CAPSULES); (2 WEEKS ON THEN 1 WEEK OFF )
     Route: 048

REACTIONS (8)
  - Neutropenia [Unknown]
  - Iron deficiency anaemia [Unknown]
  - Headache [Unknown]
  - Nausea [Unknown]
  - Anaemia [Unknown]
  - Migraine with aura [Unknown]
  - Anaemia of malignant disease [Unknown]
  - Off label use [Unknown]
